FAERS Safety Report 24146785 (Version 3)
Quarter: 2024Q3

REPORT INFORMATION
  Report Type: Spontaneous
  Country: US (occurrence: US)
  Receive Date: 20240729
  Receipt Date: 20240926
  Transmission Date: 20241017
  Serious: No
  Sender: BECTON DICKINSON
  Company Number: US-BECTON DICKINSON-US-BD-24-000457

PATIENT
  Age: 76 Year
  Sex: Female

DRUGS (1)
  1. CHLORAPREP ONE-STEP FREPP [Suspect]
     Active Substance: CHLORHEXIDINE GLUCONATE\ISOPROPYL ALCOHOL
     Indication: Infection prophylaxis
     Dosage: UNK, SINGLE
     Route: 061
     Dates: start: 20240701, end: 20240701

REACTIONS (3)
  - Haemorrhage [Recovered/Resolved]
  - Injury associated with device [Recovered/Resolved]
  - Device malfunction [Recovered/Resolved]

NARRATIVE: CASE EVENT DATE: 20240701
